FAERS Safety Report 20019611 (Version 3)
Quarter: 2021Q4

REPORT INFORMATION
  Report Type: Report from Study
  Country: US (occurrence: US)
  Receive Date: 20211101
  Receipt Date: 20211203
  Transmission Date: 20220303
  Serious: Yes (Hospitalization, Other)
  Sender: FDA-Public Use
  Company Number: US-GLAXOSMITHKLINE-US2021197357

PATIENT
  Age: 72 Year
  Sex: Female

DRUGS (2)
  1. NIRAPARIB [Suspect]
     Active Substance: NIRAPARIB
     Indication: Ovarian cancer
     Dosage: 100 MG, QD ( CAPSULE)
     Route: 048
     Dates: start: 20211006
  2. NIRAPARIB [Suspect]
     Active Substance: NIRAPARIB
     Dosage: 100 MG, QD (PM WITHOUT FOOD)
     Route: 048
     Dates: start: 2021

REACTIONS (16)
  - Intestinal obstruction [Recovered/Resolved]
  - Abdominal pain upper [Recovered/Resolved]
  - Defaecation urgency [Recovered/Resolved]
  - Dyspepsia [Not Recovered/Not Resolved]
  - Nausea [Unknown]
  - Gastrooesophageal reflux disease [Recovered/Resolved]
  - Headache [Not Recovered/Not Resolved]
  - Sleep disorder [Not Recovered/Not Resolved]
  - Blood pressure increased [Unknown]
  - Gastrointestinal disorder [Unknown]
  - Vomiting [Unknown]
  - Fatigue [Not Recovered/Not Resolved]
  - Gastrointestinal disorder [Not Recovered/Not Resolved]
  - Flushing [Not Recovered/Not Resolved]
  - Product dose omission issue [Unknown]
  - Off label use [Not Recovered/Not Resolved]

NARRATIVE: CASE EVENT DATE: 20211006
